FAERS Safety Report 14028149 (Version 3)
Quarter: 2018Q1

REPORT INFORMATION
  Report Type: Spontaneous
  Country: JP (occurrence: JP)
  Receive Date: 20171002
  Receipt Date: 20180102
  Transmission Date: 20180508
  Serious: Yes (Death, Other)
  Sender: FDA-Public Use
  Company Number: JP-009507513-1709JPN002681J

PATIENT
  Age: 38 Year
  Sex: Male
  Weight: 88 kg

DRUGS (6)
  1. ANPLAG [Concomitant]
     Active Substance: SARPOGRELATE
     Dosage: UNK
     Route: 048
  2. VALSARTAN. [Concomitant]
     Active Substance: VALSARTAN
     Indication: HYPERTENSION
     Dosage: 40 MG, QD
     Route: 048
     Dates: start: 201709, end: 20170921
  3. CLOPIDOGREL [Concomitant]
     Active Substance: CLOPIDOGREL BISULFATE
     Indication: PROPHYLAXIS
     Dosage: 75 MG, QD
     Route: 048
     Dates: start: 20170707
  4. CUBICIN [Suspect]
     Active Substance: DAPTOMYCIN
     Indication: STAPHYLOCOCCAL INFECTION
     Dosage: 350 MG, QD
     Route: 041
     Dates: start: 20170921, end: 20170921
  5. TAKEPRON [Concomitant]
     Active Substance: LANSOPRAZOLE
     Indication: GASTROINTESTINAL DISORDER
     Dosage: 15 MG, QD
     Route: 048
     Dates: start: 20170910, end: 20170921
  6. RIZABEN [Concomitant]
     Active Substance: TRANILAST
     Indication: SCAR
     Dosage: 200 MG, QD
     Route: 048
     Dates: start: 201709

REACTIONS (2)
  - Anaphylactic shock [Fatal]
  - Injection site pain [Fatal]

NARRATIVE: CASE EVENT DATE: 20170921
